FAERS Safety Report 19238842 (Version 4)
Quarter: 2022Q2

REPORT INFORMATION
  Report Type: Report from Study
  Country: NZ (occurrence: NZ)
  Receive Date: 20210510
  Receipt Date: 20220603
  Transmission Date: 20220721
  Serious: Yes (Hospitalization)
  Sender: FDA-Public Use
  Company Number: NVSC2021NZ103275

PATIENT
  Sex: Male

DRUGS (3)
  1. COSENTYX [Suspect]
     Active Substance: SECUKINUMAB
     Indication: Psoriasis
     Dosage: 300 MG, QMO
     Route: 058
     Dates: start: 20210429
  2. COSENTYX [Suspect]
     Active Substance: SECUKINUMAB
     Dosage: UNK, UNKNOWN
     Route: 065
  3. COSENTYX [Suspect]
     Active Substance: SECUKINUMAB
     Dosage: 300 MG, QMO
     Route: 058
     Dates: start: 20210429

REACTIONS (4)
  - Gastric disorder [Unknown]
  - Psoriasis [Unknown]
  - Disease recurrence [Unknown]
  - Product use issue [Unknown]
